FAERS Safety Report 23741038 (Version 2)
Quarter: 2024Q2

REPORT INFORMATION
  Report Type: Report from Study
  Country: US (occurrence: US)
  Receive Date: 20240415
  Receipt Date: 20240612
  Transmission Date: 20240715
  Serious: Yes (Other)
  Sender: FDA-Public Use
  Company Number: US-ABBVIE-5715658

PATIENT
  Sex: Male

DRUGS (1)
  1. HUMIRA [Suspect]
     Active Substance: ADALIMUMAB
     Indication: Ankylosing spondylitis
     Route: 058
     Dates: start: 20190801, end: 202405

REACTIONS (10)
  - Neoplasm [Not Recovered/Not Resolved]
  - Haemoptysis [Not Recovered/Not Resolved]
  - Therapeutic product effect incomplete [Not Recovered/Not Resolved]
  - Herpes zoster [Not Recovered/Not Resolved]
  - Road traffic accident [Unknown]
  - Limb injury [Unknown]
  - Spinal column injury [Unknown]
  - Loss of personal independence in daily activities [Unknown]
  - Back pain [Recovering/Resolving]
  - Asthma [Unknown]

NARRATIVE: CASE EVENT DATE: 20230101
